FAERS Safety Report 16984055 (Version 2)
Quarter: 2019Q4

REPORT INFORMATION
  Report Type: Report from Study
  Country: RO (occurrence: RO)
  Receive Date: 20191101
  Receipt Date: 20191112
  Transmission Date: 20200122
  Serious: Yes (Hospitalization, Other)
  Sender: FDA-Public Use
  Company Number: NVSC2019RO019999

PATIENT
  Sex: Female
  Weight: 46 kg

DRUGS (2)
  1. VOTRIENT [Suspect]
     Active Substance: PAZOPANIB HYDROCHLORIDE
     Indication: RENAL CELL CARCINOMA
     Dosage: 800 MG
     Route: 065
     Dates: start: 201709, end: 20190830
  2. VOTRIENT [Suspect]
     Active Substance: PAZOPANIB HYDROCHLORIDE
     Dosage: 400 MG (2X200 MG), QD
     Route: 065

REACTIONS (6)
  - Syncope [Unknown]
  - Gastric disorder [Not Recovered/Not Resolved]
  - Weight increased [Unknown]
  - Haemoglobin decreased [Unknown]
  - Dizziness [Unknown]
  - Gastric haemorrhage [Unknown]
